FAERS Safety Report 22013007 (Version 7)
Quarter: 2024Q2

REPORT INFORMATION
  Report Type: Spontaneous
  Country: GB (occurrence: GB)
  Receive Date: 20230220
  Receipt Date: 20240530
  Transmission Date: 20240716
  Serious: Yes (Other)
  Sender: FDA-Public Use
  Company Number: GB-MYLANLABS-2022M1148670

PATIENT
  Age: 19 Year
  Sex: Male

DRUGS (2)
  1. CLOZARIL [Suspect]
     Active Substance: CLOZAPINE
     Indication: Schizophrenia
     Dosage: UNK
     Route: 048
     Dates: start: 20221118
  2. CLOZARIL [Suspect]
     Active Substance: CLOZAPINE
     Dosage: UNK, ( REDUCED AND STOPPED)
     Route: 048
     Dates: end: 202404

REACTIONS (4)
  - Neutropenia [Recovered/Resolved]
  - Leukopenia [Recovered/Resolved]
  - Neutrophil count increased [Recovered/Resolved]
  - Therapy cessation [Unknown]

NARRATIVE: CASE EVENT DATE: 20221228
